FAERS Safety Report 4887517-0 (Version None)
Quarter: 2006Q1

REPORT INFORMATION
  Report Type: 
  Country: None (occurrence: None)
  Receive Date: 20060123
  Receipt Date: 20051118
  Transmission Date: 20060701
  Serious: Yes (Death, Life-Threatening, Hospitalization)
  Sender: FDA-Public Use
  Company Number: 2005AP06049

PATIENT
  Age: 29885 Day
  Sex: Male
  Weight: 42 kg

DRUGS (4)
  1. CASODEX [Suspect]
     Indication: PROSTATE CANCER
     Route: 048
     Dates: start: 20051017, end: 20051118
  2. LEUPLIN SR [Suspect]
     Indication: PROSTATE CANCER
     Route: 058
     Dates: start: 20051104, end: 20051104
  3. SELBEX [Concomitant]
     Indication: GASTRITIS
     Route: 048
     Dates: start: 20051017, end: 20051117
  4. LONOXIN [Concomitant]
     Indication: CANCER PAIN
     Route: 048
     Dates: start: 20051017, end: 20051117

REACTIONS (5)
  - CARDIAC FAILURE [None]
  - CRYPTOGENIC ORGANIZING PNEUMONIA [None]
  - INTERSTITIAL LUNG DISEASE [None]
  - METASTASES TO LUNG [None]
  - PULMONARY OEDEMA [None]
